FAERS Safety Report 9527915 (Version 1)
Quarter: 2013Q3

REPORT INFORMATION
  Report Type: Spontaneous
  Country: US (occurrence: US)
  Receive Date: 20130917
  Receipt Date: 20130917
  Transmission Date: 20140515
  Serious: No
  Sender: FDA-Public Use
  Company Number: US-PFIZER INC-2013263772

PATIENT
  Age: 59 Year
  Sex: Female
  Weight: 44.44 kg

DRUGS (2)
  1. ATORVASTATIN CALCIUM [Suspect]
     Indication: BLOOD CHOLESTEROL INCREASED
     Dosage: 20MG DAILY
     Dates: start: 2012, end: 2013
  2. SYMBICORT [Concomitant]
     Dosage: UNK, 2X/DAY

REACTIONS (2)
  - Abdominal discomfort [Recovered/Resolved]
  - Nausea [Unknown]
